FAERS Safety Report 13850705 (Version 2)
Quarter: 2017Q3

REPORT INFORMATION
  Report Type: Report from Study
  Country: US (occurrence: US)
  Receive Date: 20170810
  Receipt Date: 20170920
  Transmission Date: 20171127
  Serious: Yes (Hospitalization, Other)
  Sender: FDA-Public Use
  Company Number: US-AMGEN-USASL2017117754

PATIENT
  Age: 65 Year
  Sex: Female
  Weight: 48.53 kg

DRUGS (22)
  1. ASTELIN [Concomitant]
     Active Substance: AZELASTINE HYDROCHLORIDE
     Dosage: UNK UNK, AS NECESSARY
  2. DESONATE [Concomitant]
     Active Substance: DESONIDE
     Dosage: UNK UNK, BID
  3. ZOFRAN [Concomitant]
     Active Substance: ONDANSETRON HYDROCHLORIDE
     Dosage: 8 MG, QD
     Route: 048
  4. SYNTHROID [Concomitant]
     Active Substance: LEVOTHYROXINE SODIUM
     Dosage: 100 MUG, QD
     Route: 048
  5. RAYOS [Concomitant]
     Active Substance: PREDNISONE
     Dosage: 1 MG, QD
     Route: 048
  6. PROLIA [Suspect]
     Active Substance: DENOSUMAB
     Indication: OSTEOPOROSIS
     Dosage: 60 MG, Q6MO
     Route: 058
     Dates: start: 2010
  7. RESTASIS [Concomitant]
     Active Substance: CYCLOSPORINE
     Dosage: UNK UNK, BID
     Route: 047
  8. FLECTOR [Concomitant]
     Active Substance: DICLOFENAC EPOLAMINE
     Dosage: UNK UNK, QD
     Route: 062
  9. VITAMIN D3 [Concomitant]
     Active Substance: CHOLECALCIFEROL
  10. LINZESS [Concomitant]
     Active Substance: LINACLOTIDE
     Dosage: 145 MUG, QD
     Route: 048
  11. MIRALAX [Concomitant]
     Active Substance: POLYETHYLENE GLYCOL 3350
     Dosage: UNK UNK, QD
     Route: 048
  12. AMPHETAMINE [Concomitant]
     Active Substance: AMPHETAMINE
     Dosage: 10 MG, QD
     Route: 048
  13. XOLEGEL COREPAK [Concomitant]
     Dosage: UNK UNK, QD
  14. OLOPATADINE. [Concomitant]
     Active Substance: OLOPATADINE
     Dosage: UNK UNK, BID
     Route: 047
  15. TAMIFLU [Concomitant]
     Active Substance: OSELTAMIVIR PHOSPHATE
     Dosage: 75 MG, BID
     Route: 048
  16. CALCIUM [Concomitant]
     Active Substance: CALCIUM
  17. NITROGLYCERINE [Concomitant]
     Active Substance: NITROGLYCERIN
     Route: 062
  18. GAMMAGARD [Concomitant]
     Active Substance: HUMAN IMMUNOGLOBULIN G
     Dosage: 40 MG, QWK
  19. FLUBLOK [Concomitant]
     Active Substance: INFLUENZA A VIRUS A/CALIFORNIA/7/2009 (H1N1) RECOMBINANT HEMAGGLUTININ ANTIGEN\INFLUENZA A VIRUS A/VICTORIA/361/2011 (H3N2) RECOMBINANT HEMAGGLUTININ ANTIGEN\INFLUENZA B VIRUS B/WISCONSIN/1/2010 RECOMBINANT HEMAGGLUTININ ANTIGEN
     Dosage: UNK UNK, Q12MO
  20. SALAGEN [Concomitant]
     Active Substance: PILOCARPINE HYDROCHLORIDE
     Dosage: 5 MG, TID
     Route: 048
  21. LIDODERM [Concomitant]
     Active Substance: LIDOCAINE
     Dosage: UNK UNK, QD
  22. SAVELLA [Concomitant]
     Active Substance: MILNACIPRAN HYDROCHLORIDE
     Dosage: 25 MG, UNK
     Route: 048

REACTIONS (18)
  - Mobility decreased [Unknown]
  - Necrosis [Unknown]
  - Stomatitis [Unknown]
  - Natural killer cell count increased [Unknown]
  - Cervical vertebral fracture [Unknown]
  - Joint swelling [Unknown]
  - Rash [Unknown]
  - Chronic sinusitis [Unknown]
  - Abdominal pain upper [Unknown]
  - Arthralgia [Unknown]
  - Leukopenia [Unknown]
  - Fall [Recovering/Resolving]
  - Tinnitus [Unknown]
  - Liver function test increased [Unknown]
  - Thoracic vertebral fracture [Unknown]
  - Tooth disorder [Unknown]
  - Concussion [Unknown]
  - Syncope [Unknown]

NARRATIVE: CASE EVENT DATE: 2015
